FAERS Safety Report 6421418-1 (Version None)
Quarter: 2009Q4

REPORT INFORMATION
  Report Type: 
  Country: None (occurrence: None)
  Receive Date: 20091030
  Receipt Date: 20091028
  Transmission Date: 20100525
  Serious: Yes (Disabling)
  Sender: FDA-Public Use
  Company Number: US-BRISTOL-MYERS SQUIBB COMPANY-14835185

PATIENT
  Age: 67 Year
  Sex: Male

DRUGS (4)
  1. METFORMIN HCL [Suspect]
  2. LANTUS [Suspect]
     Indication: DIABETES MELLITUS
     Dosage: 1 DF=85U HS,SOLN FOR INJECTION, APPROXIMATELY FOR 10 YEARS 88U  TO 89U AND THEN TO 85U
     Route: 058
     Dates: start: 19990101
  3. HUMALOG [Suspect]
  4. ZOLOFT [Concomitant]
     Dosage: 1 DF = 30 PILLS

REACTIONS (4)
  - BLOOD GLUCOSE DECREASED [None]
  - GLYCOSYLATED HAEMOGLOBIN INCREASED [None]
  - NEUROPATHY PERIPHERAL [None]
  - WHEELCHAIR USER [None]
